FAERS Safety Report 4753470-3 (Version None)
Quarter: 2005Q3

REPORT INFORMATION
  Report Type: 
  Country: None (occurrence: None)
  Receive Date: 20050824
  Receipt Date: 20050822
  Transmission Date: 20060218
  Serious: Yes (Hospitalization, Other)
  Sender: FDA-Public Use
  Company Number: FRWYE847921JUL05

PATIENT
  Age: 39 Year
  Sex: Female

DRUGS (3)
  1. EFFEXOR XR [Suspect]
     Indication: DEPRESSION
     Dosage: 75 MG DAILY
     Route: 048
     Dates: start: 20030715, end: 20050324
  2. LEXOMIL (BROMAZEPAM) [Suspect]
     Dosage: 2 TABLET 1X PER 1 DAY
     Route: 048
     Dates: start: 20040315, end: 20050324
  3. PIROXICAM [Suspect]
     Route: 048
     Dates: end: 20050324

REACTIONS (12)
  - BLOOD IMMUNOGLOBULIN G INCREASED [None]
  - BLOOD IMMUNOGLOBULIN M INCREASED [None]
  - BLOOD IRON DECREASED [None]
  - BLOOD PHOSPHORUS DECREASED [None]
  - COAGULATION FACTOR V LEVEL DECREASED [None]
  - CYTOLYTIC HEPATITIS [None]
  - DRUG LEVEL ABOVE THERAPEUTIC [None]
  - HEPATIC ENCEPHALOPATHY [None]
  - HEPATITIS FULMINANT [None]
  - PROTHROMBIN TIME RATIO DECREASED [None]
  - STAPHYLOCOCCAL BACTERAEMIA [None]
  - UTERINE LEIOMYOMA [None]
